FAERS Safety Report 23403984 (Version 2)
Quarter: 2024Q2

REPORT INFORMATION
  Report Type: Spontaneous
  Country: UY (occurrence: None)
  Receive Date: 20240116
  Receipt Date: 20240417
  Transmission Date: 20240716
  Serious: No
  Sender: FDA-Public Use
  Company Number: UY-ROCHE-3491178

PATIENT
  Age: 37 Year
  Sex: Female

DRUGS (1)
  1. OCREVUS [Suspect]
     Active Substance: OCRELIZUMAB
     Indication: Relapsing-remitting multiple sclerosis
     Dosage: FREQUENCY WERE NOT REPORTED
     Route: 042
     Dates: start: 202309

REACTIONS (2)
  - Ophthalmic herpes zoster [Recovered/Resolved]
  - Varicella zoster virus infection [Unknown]

NARRATIVE: CASE EVENT DATE: 20231101
